FAERS Safety Report 4920389-4 (Version None)
Quarter: 2006Q1

REPORT INFORMATION
  Report Type: 
  Country: None (occurrence: None)
  Receive Date: 20060223
  Receipt Date: 20050930
  Transmission Date: 20060701
  Serious: Yes (Hospitalization, Other)
  Sender: FDA-Public Use
  Company Number: US-MERCK-0510USA00737

PATIENT
  Age: 72 Year
  Sex: Female
  Weight: 50 kg

DRUGS (13)
  1. VIOXX [Suspect]
     Indication: RHEUMATOID ARTHRITIS
     Route: 048
     Dates: start: 19991228, end: 20040910
  2. FERROUS SULFATE [Concomitant]
     Route: 065
  3. FOLIC ACID [Concomitant]
     Route: 065
  4. [THERAPY UNSPECIFIED] [Concomitant]
     Route: 065
  5. NEURONTIN [Concomitant]
     Route: 065
  6. NORVASC [Concomitant]
     Route: 065
  7. PAXIL [Concomitant]
     Route: 065
  8. PREDNISONE [Concomitant]
     Route: 065
  9. [THERAPY UNSPECIFIED] [Concomitant]
     Route: 065
  10. PROTONIX [Concomitant]
     Route: 065
  11. SYNTHROID [Concomitant]
     Route: 065
  12. TEMAZEPAM [Concomitant]
     Route: 065
  13. TOPROL-XL [Concomitant]
     Route: 065

REACTIONS (5)
  - ANGIOPATHY [None]
  - ARTERIAL OCCLUSIVE DISEASE [None]
  - DEPRESSION [None]
  - MENTAL DISORDER [None]
  - MYOCARDIAL INFARCTION [None]
